FAERS Safety Report 8890448 (Version 1)
Quarter: 2012Q4

REPORT INFORMATION
  Report Type: 
  Country: MX (occurrence: MX)
  Receive Date: 20121107
  Receipt Date: 20121107
  Transmission Date: 20130627
  Serious: Yes (Death, Other)
  Sender: FDA-Public Use
  Company Number: PHHY2012MX091827

PATIENT
  Age: 34 None
  Sex: Female

DRUGS (6)
  1. MYFORTIC [Suspect]
     Indication: RENAL TRANSPLANT
     Dosage: 360 mg, 4 tablets per day
     Dates: start: 20120909
  2. PROGRAF [Concomitant]
     Indication: RENAL TRANSPLANT
     Dosage: UNK UKN, UNK
     Dates: start: 2001
  3. METICORTEN [Concomitant]
     Indication: RENAL TRANSPLANT
     Dosage: UNK UKN, UNK
     Dates: start: 201209
  4. PANTOPRAZOLE [Concomitant]
     Indication: GASTRITIS
     Dosage: UNK UKN, UNK
     Dates: start: 201209
  5. DILACORON [Concomitant]
     Indication: BLOOD PRESSURE
     Dosage: UNK UKN, UNK
     Dates: start: 201109
  6. IMODIUM [Concomitant]
     Indication: DIARRHOEA
     Dosage: UNK UKN, UNK
     Dates: start: 201210

REACTIONS (8)
  - Death [Fatal]
  - Kidney transplant rejection [Not Recovered/Not Resolved]
  - Fatigue [Not Recovered/Not Resolved]
  - Asthenia [Not Recovered/Not Resolved]
  - Tachycardia [Not Recovered/Not Resolved]
  - Swelling face [Not Recovered/Not Resolved]
  - Blood pressure fluctuation [Not Recovered/Not Resolved]
  - Insomnia [Not Recovered/Not Resolved]
